FAERS Safety Report 18609828 (Version 1)
Quarter: 2020Q4

REPORT INFORMATION
  Report Type: Spontaneous
  Country: US (occurrence: US)
  Receive Date: 20201214
  Receipt Date: 20201214
  Transmission Date: 20210114
  Serious: Yes (Hospitalization, Other)
  Sender: FDA-Public Use
  Company Number: DE-TEVA-2020-DE-1856565

PATIENT
  Age: 0 Year
  Sex: Male

DRUGS (9)
  1. HUMALIN [Suspect]
     Active Substance: INSULIN NOS
     Route: 064
  2. REMERON [Suspect]
     Active Substance: MIRTAZAPINE
     Route: 064
  3. LEVOTHYROXINE. [Suspect]
     Active Substance: LEVOTHYROXINE
     Route: 064
  4. HUMALOG [Suspect]
     Active Substance: INSULIN LISPRO
     Route: 064
  5. BUSPAR [Suspect]
     Active Substance: BUSPIRONE HYDROCHLORIDE
     Route: 065
  6. ESTRADIOL. [Suspect]
     Active Substance: ESTRADIOL
     Route: 064
  7. ABILIFY [Suspect]
     Active Substance: ARIPIPRAZOLE
     Route: 064
  8. PROGESTERONE (SOLUTION) [Suspect]
     Active Substance: PROGESTERONE
     Route: 064
  9. PROZAC [Suspect]
     Active Substance: FLUOXETINE HYDROCHLORIDE
     Route: 064

REACTIONS (5)
  - Premature baby [Recovered/Resolved]
  - Heart rate decreased [Recovered/Resolved]
  - Neonatal respiratory distress syndrome [Recovered/Resolved]
  - Dyspnoea [Recovered/Resolved]
  - Foetal exposure during pregnancy [Unknown]

NARRATIVE: CASE EVENT DATE: 20170828
